FAERS Safety Report 15158728 (Version 4)
Quarter: 2019Q2

REPORT INFORMATION
  Report Type: Spontaneous
  Country: US (occurrence: US)
  Receive Date: 20180718
  Receipt Date: 20190627
  Transmission Date: 20190711
  Serious: Yes (Other)
  Sender: FDA-Public Use
  Company Number: US-SA-2018SA188357

PATIENT
  Age: 50 Year
  Sex: Female

DRUGS (1)
  1. KEVZARA [Suspect]
     Active Substance: SARILUMAB
     Indication: RHEUMATOID ARTHRITIS
     Dosage: 200 MG, QOW
     Route: 058
     Dates: start: 20180615, end: 20190507

REACTIONS (10)
  - White blood cell count decreased [Unknown]
  - Platelet count decreased [Unknown]
  - Contusion [Unknown]
  - Fatigue [Unknown]
  - Onychoclasis [Unknown]
  - Haemorrhage [Unknown]
  - Nausea [Unknown]
  - Weight decreased [Unknown]
  - Asthenia [Unknown]
  - Nail discolouration [Unknown]

NARRATIVE: CASE EVENT DATE: 20180704
